FAERS Safety Report 4618814-1 (Version None)
Quarter: 2005Q1

REPORT INFORMATION
  Report Type: 
  Country: None (occurrence: None)
  Receive Date: 20050323
  Receipt Date: 20050307
  Transmission Date: 20050727
  Serious: Yes (Other)
  Sender: FDA-Public Use
  Company Number: USA040773536

PATIENT
  Age: 61 Year
  Sex: Female
  Weight: 48 kg

DRUGS (7)
  1. FORTEO [Suspect]
     Indication: OSTEOPOROSIS
     Dosage: 20 UG DAY
     Dates: start: 20030801
  2. DULOXETINE [Concomitant]
  3. MYSOLINE (PRIMIDONE0 [Concomitant]
  4. MOBIC [Concomitant]
  5. TOPAMAX [Concomitant]
  6. ELAVIL [Concomitant]
  7. LOVASTATIN [Concomitant]

REACTIONS (6)
  - ANTICONVULSANT DRUG LEVEL ABOVE THERAPEUTIC [None]
  - DRUG INTERACTION [None]
  - FALL [None]
  - PHARMACEUTICAL PRODUCT COMPLAINT [None]
  - RASH MACULAR [None]
  - SOMNOLENCE [None]
